FAERS Safety Report 6672409-7 (Version None)
Quarter: 2010Q2

REPORT INFORMATION
  Report Type: 
  Country: None (occurrence: None)
  Receive Date: 20100408
  Receipt Date: 20100324
  Transmission Date: 20101027
  Serious: Yes (Other)
  Sender: FDA-Public Use
  Company Number: US-ELI_LILLY_AND_COMPANY-US201004000146

PATIENT
  Age: 68 Year
  Sex: Male

DRUGS (3)
  1. EFFIENT [Suspect]
     Dosage: UNK, UNK
  2. EFFIENT [Suspect]
     Dates: start: 20100301
  3. PLAVIX [Concomitant]
     Dates: end: 20100301

REACTIONS (2)
  - GASTROINTESTINAL HAEMORRHAGE [None]
  - OESOPHAGEAL CARCINOMA [None]
